FAERS Safety Report 19196724 (Version 1)
Quarter: 2021Q2

REPORT INFORMATION
  Report Type: Spontaneous
  Country: FR (occurrence: FR)
  Receive Date: 20210430
  Receipt Date: 20210430
  Transmission Date: 20210717
  Serious: Yes (Hospitalization, Other)
  Sender: FDA-Public Use
  Company Number: FR-AUROBINDO-AUR-APL-2021-017378

PATIENT
  Age: 31 Year
  Sex: Male

DRUGS (1)
  1. SERTRALINE [Suspect]
     Active Substance: SERTRALINE HYDROCHLORIDE
     Indication: DEPRESSION
     Dosage: 50 MILLIGRAM, ONCE A DAY
     Route: 048
     Dates: start: 202102

REACTIONS (2)
  - Persecutory delusion [Not Recovered/Not Resolved]
  - Brief psychotic disorder with marked stressors [Not Recovered/Not Resolved]

NARRATIVE: CASE EVENT DATE: 20210306
